FAERS Safety Report 10246411 (Version 1)
Quarter: 2014Q2

REPORT INFORMATION
  Report Type: Spontaneous
  Country: US (occurrence: US)
  Receive Date: 20140619
  Receipt Date: 20140619
  Transmission Date: 20141212
  Serious: No
  Sender: FDA-Public Use
  Company Number: US-PFIZER INC-2014166144

PATIENT
  Age: 67 Year
  Sex: Female

DRUGS (6)
  1. NEURONTIN [Suspect]
     Dosage: UNK
  2. KEFZOL [Suspect]
     Dosage: UNK
  3. NITROFURANTOIN [Suspect]
     Dosage: UNK
  4. NIACIN [Suspect]
     Dosage: UNK
  5. ACTOS [Suspect]
     Dosage: UNK
  6. DARVOCET-N 100 [Suspect]
     Dosage: UNK

REACTIONS (1)
  - Drug hypersensitivity [Unknown]
